FAERS Safety Report 17841085 (Version 2)
Quarter: 2021Q3

REPORT INFORMATION
  Report Type: Spontaneous
  Country: US (occurrence: US)
  Receive Date: 20200529
  Receipt Date: 20210923
  Transmission Date: 20211014
  Serious: No
  Sender: FDA-Public Use
  Company Number: US-PFIZER INC-2020209833

PATIENT
  Age: 65 Year
  Sex: Female
  Weight: 62.6 kg

DRUGS (2)
  1. PREMARIN [Suspect]
     Active Substance: ESTROGENS, CONJUGATED
     Dosage: UNK
  2. PREMARIN [Suspect]
     Active Substance: ESTROGENS, CONJUGATED
     Dosage: UNK, WEEKLY (ONCE A WEEK)
     Route: 067

REACTIONS (5)
  - Wrong technique in product usage process [Unknown]
  - Vulvovaginal pain [Unknown]
  - Off label use [Unknown]
  - Breast mass [Unknown]
  - Expired product administered [Unknown]

NARRATIVE: CASE EVENT DATE: 2009
